FAERS Safety Report 15662585 (Version 1)
Quarter: 2018Q4

REPORT INFORMATION
  Report Type: Spontaneous
  Country: US (occurrence: US)
  Receive Date: 20181127
  Receipt Date: 20181127
  Transmission Date: 20190205
  Serious: No
  Sender: FDA-Public Use
  Company Number: US-ASTRAZENECA-2018SF52588

PATIENT
  Sex: Male

DRUGS (2)
  1. SYMBICORT [Suspect]
     Active Substance: BUDESONIDE\FORMOTEROL FUMARATE DIHYDRATE
     Indication: COUGH
     Dosage: 80/4.5 MCG, TWO PUFFS TWICE DAILY
     Route: 055
     Dates: start: 20181023
  2. OMEPRAZOLE. [Suspect]
     Active Substance: OMEPRAZOLE
     Indication: GASTROOESOPHAGEAL REFLUX DISEASE
     Route: 048

REACTIONS (11)
  - Chronic obstructive pulmonary disease [Unknown]
  - Muscle spasms [Unknown]
  - Off label use [Unknown]
  - Product use in unapproved indication [Unknown]
  - Dyspnoea [Unknown]
  - Bronchitis [Unknown]
  - Cough [Unknown]
  - Wheezing [Unknown]
  - Hypersensitivity [Unknown]
  - Sleep disorder [Unknown]
  - Vomiting [Unknown]
